FAERS Safety Report 6705361-6 (Version None)
Quarter: 2010Q2

REPORT INFORMATION
  Report Type: 
  Country: None (occurrence: None)
  Receive Date: 20100503
  Receipt Date: 20100423
  Transmission Date: 20101027
  Serious: Yes (Hospitalization, Other)
  Sender: FDA-Public Use
  Company Number: US-RB-001178-10

PATIENT
  Age: 55 Year
  Sex: Female

DRUGS (1)
  1. SUBOXONE [Suspect]
     Indication: DRUG USE FOR UNKNOWN INDICATION
     Dosage: DOSING DETAILS UNKNOWN
     Route: 065

REACTIONS (13)
  - ARTHRALGIA [None]
  - ARTHROPATHY [None]
  - BACK DISORDER [None]
  - BACK PAIN [None]
  - DEPRESSION [None]
  - INSOMNIA [None]
  - MUSCLE SPASMS [None]
  - SKIN PAPILLOMA [None]
  - VAGINAL CYST [None]
  - VIRAL INFECTION [None]
  - VOMITING [None]
  - VULVAL CANCER [None]
  - VULVAR DYSPLASIA [None]
